FAERS Safety Report 10461509 (Version 1)
Quarter: 2014Q3

REPORT INFORMATION
  Report Type: Spontaneous
  Country: GR (occurrence: GR)
  Receive Date: 20140918
  Receipt Date: 20140918
  Transmission Date: 20150326
  Serious: Yes (Other)
  Sender: FDA-Public Use
  Company Number: PHHY2014GR117596

PATIENT
  Age: 41 Year
  Sex: Female

DRUGS (1)
  1. SOM230 [Suspect]
     Active Substance: PASIREOTIDE
     Indication: PITUITARY-DEPENDENT CUSHING^S SYNDROME

REACTIONS (6)
  - Malaise [Recovering/Resolving]
  - Neck pain [Recovering/Resolving]
  - Tachycardia [Recovering/Resolving]
  - Hyperthyroidism [Recovering/Resolving]
  - Pyrexia [Recovering/Resolving]
  - Thyroiditis subacute [Recovering/Resolving]
